FAERS Safety Report 4740248-X (Version None)
Quarter: 2005Q3

REPORT INFORMATION
  Report Type: 
  Country: None (occurrence: None)
  Receive Date: 20050810
  Receipt Date: 20050309
  Transmission Date: 20060218
  Serious: Yes (Other)
  Sender: FDA-Public Use
  Company Number: US-GLAXOSMITHKLINE-A0549063A

PATIENT
  Age: 83 Year
  Sex: Female

DRUGS (7)
  1. PAXIL [Suspect]
     Dosage: 10MG PER DAY
     Route: 048
     Dates: start: 20050308
  2. KEFLEX [Concomitant]
  3. PEPCID [Concomitant]
  4. LASIX [Concomitant]
  5. POTASSIUM CHLORIDE [Concomitant]
  6. VERAPAMIL [Concomitant]
  7. LACTOBACILLUS [Concomitant]

REACTIONS (1)
  - DEAFNESS [None]
